FAERS Safety Report 18881010 (Version 1)
Quarter: 2021Q1

REPORT INFORMATION
  Report Type: Spontaneous
  Country: IT (occurrence: IT)
  Receive Date: 20210211
  Receipt Date: 20210211
  Transmission Date: 20210420
  Serious: Yes (Hospitalization)
  Sender: FDA-Public Use
  Company Number: IT-PFIZER INC-2021127218

PATIENT
  Age: 27 Year
  Sex: Female

DRUGS (4)
  1. FLUOXETINE [Suspect]
     Active Substance: FLUOXETINE HYDROCHLORIDE
     Indication: PERSONALITY DISORDER
     Dosage: 560 MG, SINGLE
     Route: 048
     Dates: start: 20190925, end: 20190925
  2. TRILAFON [Suspect]
     Active Substance: PERPHENAZINE
     Indication: PERSONALITY DISORDER
     Dosage: 10 DF, SINGLE
     Route: 048
     Dates: start: 20190925, end: 20190925
  3. VALDORM [FLURAZEPAM HYDROCHLORIDE] [Suspect]
     Active Substance: FLURAZEPAM HYDROCHLORIDE
     Indication: PERSONALITY DISORDER
     Dosage: 10 DF, SINGLE
     Route: 048
     Dates: start: 20190925, end: 20190925
  4. TAVOR (LORAZEPAM) [Suspect]
     Active Substance: LORAZEPAM
     Indication: PERSONALITY DISORDER
     Dosage: 40 DF, SINGLE
     Route: 048
     Dates: start: 20190925, end: 20190925

REACTIONS (3)
  - Sopor [Recovering/Resolving]
  - Drug abuse [Recovering/Resolving]
  - Alcohol abuse [Recovering/Resolving]

NARRATIVE: CASE EVENT DATE: 20190925
